FAERS Safety Report 15858032 (Version 1)
Quarter: 2019Q1

REPORT INFORMATION
  Report Type: Spontaneous
  Country: US (occurrence: US)
  Receive Date: 20190123
  Receipt Date: 20190123
  Transmission Date: 20190417
  Serious: No
  Sender: FDA-Public Use
  Company Number: US-TEVA-2018-US-994145

PATIENT
  Sex: Female

DRUGS (1)
  1. METFORMIN HYDROCHLORIDE EXTENDED RELEASE TABLETS [Suspect]
     Active Substance: METFORMIN HYDROCHLORIDE

REACTIONS (2)
  - Blood glucose increased [Unknown]
  - Product substitution issue [Unknown]
